FAERS Safety Report 7022492-4 (Version None)
Quarter: 2010Q3

REPORT INFORMATION
  Report Type: 
  Country: None (occurrence: None)
  Receive Date: 20100930
  Receipt Date: 20100922
  Transmission Date: 20110219
  Serious: Yes (Life-Threatening)
  Sender: FDA-Public Use
  Company Number: DE-MILLENNIUM PHARMACEUTICALS, INC.-2010-04928

PATIENT

DRUGS (3)
  1. VELCADE [Suspect]
     Indication: MULTIPLE MYELOMA
     Dosage: 2.6 MG, UNK
     Route: 042
     Dates: start: 20090127, end: 20091005
  2. TRAMAGIT [Concomitant]
     Indication: PAIN
     Dosage: UNK
     Dates: start: 20090611
  3. OMEP [Concomitant]
     Indication: PROPHYLAXIS
     Dosage: 40 MG, UNK
     Route: 048
     Dates: start: 20090522

REACTIONS (1)
  - THROMBOCYTOPENIA [None]
